FAERS Safety Report 16495719 (Version 1)
Quarter: 2019Q2

REPORT INFORMATION
  Report Type: Spontaneous
  Country: FR (occurrence: FR)
  Receive Date: 20190628
  Receipt Date: 20190628
  Transmission Date: 20190711
  Serious: Yes (Life-Threatening)
  Sender: FDA-Public Use
  Company Number: FR-MYLANLABS-2019M1059247

PATIENT
  Age: 70 Year
  Sex: Female
  Weight: 66 kg

DRUGS (16)
  1. ACIDE FOLIQUE [Suspect]
     Active Substance: FOLIC ACID
     Indication: PRODUCT USED FOR UNKNOWN INDICATION
     Dosage: 1 DOSAGE FORM, QD
     Route: 048
     Dates: start: 2015, end: 20181215
  2. TARDYFERON [Suspect]
     Active Substance: FERROUS SULFATE
     Indication: PRODUCT USED FOR UNKNOWN INDICATION
     Dosage: UNK
     Route: 048
     Dates: end: 20181215
  3. LETROZOLE. [Suspect]
     Active Substance: LETROZOLE
     Indication: BREAST CANCER FEMALE
     Dosage: 2.5 MILLIGRAM, QD
     Route: 048
     Dates: start: 2015, end: 20181215
  4. DICODIN [Suspect]
     Active Substance: DIHYDROCODEINE
     Indication: PAIN
     Dosage: 2 DOSAGE FORM, QD
     Route: 048
     Dates: start: 2018, end: 20181215
  5. METFORMINE                         /00082701/ [Suspect]
     Active Substance: METFORMIN HYDROCHLORIDE
     Indication: TYPE 2 DIABETES MELLITUS
     Dosage: 1000 MILLIGRAM, QD
     Route: 048
     Dates: start: 2007, end: 20181215
  6. PARACETAMOL [Suspect]
     Active Substance: ACETAMINOPHEN
     Indication: PAIN
     Dosage: 6 DOSAGE FORM, QD
     Route: 048
     Dates: start: 2018, end: 20181215
  7. LAROXYL [Suspect]
     Active Substance: AMITRIPTYLINE HYDROCHLORIDE
     Indication: DEPRESSION
     Dosage: 1 DOSAGE FORM, QD
     Route: 048
     Dates: end: 20181215
  8. JANUMET [Suspect]
     Active Substance: METFORMIN HYDROCHLORIDE\SITAGLIPTIN PHOSPHATE
     Indication: TYPE 2 DIABETES MELLITUS
     Dosage: 2 DOSAGE FORM, QD
     Route: 048
     Dates: start: 2009, end: 20181215
  9. IBUPROFENE [Suspect]
     Active Substance: IBUPROFEN
     Indication: BACK PAIN
     Dosage: 1200 MILLIGRAM, QD
     Route: 048
     Dates: start: 20181204, end: 20181209
  10. PRAVASTATINE                       /00880402/ [Concomitant]
     Active Substance: PRAVASTATIN SODIUM
  11. ALPRAZOLAM. [Suspect]
     Active Substance: ALPRAZOLAM
     Indication: DEPRESSION
     Dosage: UNK
     Route: 048
     Dates: end: 20181215
  12. BISOCE [Concomitant]
     Active Substance: BISOPROLOL
     Dosage: UNK
  13. EUPANTOL [Concomitant]
     Active Substance: PANTOPRAZOLE SODIUM
     Dosage: UNK
  14. TRANXENE [Concomitant]
     Active Substance: CLORAZEPATE DIPOTASSIUM
  15. LACTULOSE. [Suspect]
     Active Substance: LACTULOSE
     Indication: CONSTIPATION
     Dosage: UNK
     Route: 048
     Dates: end: 20181215
  16. THERALENE [Suspect]
     Active Substance: TRIMEPRAZINE
     Indication: DEPRESSION
     Dosage: 5 GTT DROPS, QD, 5 ? 10 GOUTTES PAR JOUR
     Route: 048
     Dates: end: 20181215

REACTIONS (5)
  - Hyperkalaemia [Recovered/Resolved]
  - Vomiting [Recovered/Resolved]
  - Lactic acidosis [Recovered/Resolved]
  - Acute kidney injury [Recovered/Resolved]
  - Nausea [Recovered/Resolved]

NARRATIVE: CASE EVENT DATE: 20181209
